FAERS Safety Report 6299527-X (Version None)
Quarter: 2009Q3

REPORT INFORMATION
  Report Type: 
  Country: None (occurrence: None)
  Receive Date: 20090803
  Receipt Date: 20090715
  Transmission Date: 20100115
  Serious: Yes (Death)
  Sender: FDA-Public Use
  Company Number: 2009AL002559

PATIENT
  Age: 56 Year
  Sex: Female

DRUGS (15)
  1. DIGOXIN [Suspect]
     Dosage: PO
     Route: 048
     Dates: start: 20080203
  2. ASPIRIN [Concomitant]
  3. LEVAQUIN [Concomitant]
  4. DOXY HYCLATE [Concomitant]
  5. METRONIDAZOLE [Concomitant]
  6. NEXIUM [Concomitant]
  7. ACETAMINOPHEN [Concomitant]
  8. SEREVENT [Concomitant]
  9. ZITHROMAX [Concomitant]
  10. GUAIFENESIN [Concomitant]
  11. ALBUTEROL [Concomitant]
  12. KETOCONAZOLE [Concomitant]
  13. LORAZEPAM [Concomitant]
  14. PROPOX-N/PAP [Concomitant]
  15. ENDOCET [Concomitant]

REACTIONS (8)
  - ASTHENIA [None]
  - CARDIAC FAILURE CONGESTIVE [None]
  - DIARRHOEA [None]
  - ECONOMIC PROBLEM [None]
  - INJURY [None]
  - NAUSEA [None]
  - SURGERY [None]
  - VOMITING [None]
